FAERS Safety Report 7342228-7 (Version None)
Quarter: 2011Q1

REPORT INFORMATION
  Report Type: 
  Country: None (occurrence: None)
  Receive Date: 20110310
  Receipt Date: 20110303
  Transmission Date: 20110831
  Serious: Yes (Hospitalization)
  Sender: FDA-Public Use
  Company Number: US-BIOGENIDEC-2011BI001071

PATIENT
  Age: 59 Year
  Sex: Female
  Weight: 62 kg

DRUGS (11)
  1. LITHIUM CARBONATE [Concomitant]
     Route: 048
  2. TYSABRI [Suspect]
     Indication: MULTIPLE SCLEROSIS
     Route: 042
     Dates: start: 20090914, end: 20100927
  3. FLOMAX [Concomitant]
     Route: 048
  4. LITHIUM CARBONATE [Concomitant]
     Route: 048
  5. SINGULAIR [Concomitant]
     Route: 048
  6. TYSABRI [Suspect]
     Route: 042
     Dates: start: 20101208
  7. ABILIFY [Concomitant]
     Route: 048
  8. WELLBUTRIN [Concomitant]
     Route: 048
  9. ZOCOR [Concomitant]
     Route: 048
  10. VITAMIN D [Concomitant]
     Dosage: DOSE UNIT:1000
     Route: 048
  11. LAMICTAL [Concomitant]

REACTIONS (1)
  - OSTEOARTHRITIS [None]
